FAERS Safety Report 10562335 (Version 1)
Quarter: 2014Q4

REPORT INFORMATION
  Report Type: Spontaneous
  Country: NO (occurrence: None)
  Receive Date: 20141031
  Receipt Date: 20141031
  Transmission Date: 20150529
  Serious: Yes (Death, Hospitalization, Other)
  Sender: FDA-Public Use
  Company Number: FK201404522

PATIENT
  Age: 61 Year
  Sex: Female

DRUGS (9)
  1. PIPERACILLIN/TAZOBACTAM (MANUFACTURER UNKOWN) (PIPERACILLIN/TAZOBACTAM) (PIPERACILLIN/TAZOBACTAM) [Suspect]
     Active Substance: PIPERACILLIN SODIUM\TAZOBACTAM SODIUM
     Indication: CHILLS
  2. MEROPENEM (MANUFACTURER UNKNOWN) (MEROPENEM) (MEROPENEM) [Suspect]
     Active Substance: MEROPENEM
     Indication: PYREXIA
  3. MEROPENEM (MANUFACTURER UNKNOWN) (MEROPENEM) (MEROPENEM) [Suspect]
     Active Substance: MEROPENEM
     Indication: CHILLS
  4. CEFOTAXIME [Suspect]
     Active Substance: CEFOTAXIME\CEFOTAXIME SODIUM
     Indication: CHOLANGITIS
  5. PIPERACILLIN/TAZOBACTAM (MANUFACTURER UNKOWN) (PIPERACILLIN/TAZOBACTAM) (PIPERACILLIN/TAZOBACTAM) [Suspect]
     Active Substance: PIPERACILLIN SODIUM\TAZOBACTAM SODIUM
     Indication: PYREXIA
  6. VANCOMYCIN [Concomitant]
     Active Substance: VANCOMYCIN
  7. MEROPENEM (MANUFACTURER UNKNOWN) (MEROPENEM) (MEROPENEM) [Suspect]
     Active Substance: MEROPENEM
     Indication: MALAISE
  8. PIPERACILLIN/TAZOBACTAM (MANUFACTURER UNKOWN) (PIPERACILLIN/TAZOBACTAM) (PIPERACILLIN/TAZOBACTAM) [Suspect]
     Active Substance: PIPERACILLIN SODIUM\TAZOBACTAM SODIUM
     Indication: MALAISE
  9. METRONIDAZOLE. [Concomitant]
     Active Substance: METRONIDAZOLE

REACTIONS (1)
  - Enterococcal infection [None]
